FAERS Safety Report 20543570 (Version 1)
Quarter: 2022Q1

REPORT INFORMATION
  Report Type: Spontaneous
  Country: US (occurrence: US)
  Receive Date: 20220302
  Receipt Date: 20220302
  Transmission Date: 20220424
  Serious: Yes (Other)
  Sender: FDA-Public Use
  Company Number: US-JNJFOC-20220258702

PATIENT
  Sex: Female

DRUGS (1)
  1. ELMIRON [Suspect]
     Active Substance: PENTOSAN POLYSULFATE SODIUM
     Indication: Cystitis interstitial
     Route: 048
     Dates: start: 2001, end: 2009

REACTIONS (3)
  - Visual impairment [Unknown]
  - Delayed dark adaptation [Unknown]
  - Vision blurred [Unknown]

NARRATIVE: CASE EVENT DATE: 20190101
